FAERS Safety Report 5297254-9 (Version None)
Quarter: 2007Q2

REPORT INFORMATION
  Report Type: 
  Country: None (occurrence: None)
  Receive Date: 20070416
  Receipt Date: 20070409
  Transmission Date: 20071010
  Serious: Yes (Other)
  Sender: FDA-Public Use
  Company Number: US-JNJFOC-20070401942

PATIENT
  Age: 16 Year
  Sex: Female
  Weight: 38.1 kg

DRUGS (6)
  1. IMODIUM A-D [Suspect]
  2. IMODIUM A-D [Suspect]
     Indication: DIARRHOEA
  3. SYNTHROID [Concomitant]
     Indication: THYROID DISORDER
  4. NEXIUM [Concomitant]
     Indication: GASTRIC DISORDER
  5. PROGRAF [Concomitant]
     Indication: COMPLICATIONS OF TRANSPLANTED LUNG
  6. CELLCEPT [Concomitant]
     Indication: COMPLICATIONS OF TRANSPLANTED LUNG

REACTIONS (1)
  - BLOOD PRESSURE DECREASED [None]
